FAERS Safety Report 18369861 (Version 1)
Quarter: 2020Q4

REPORT INFORMATION
  Report Type: Spontaneous
  Country: CN (occurrence: CN)
  Receive Date: 20201012
  Receipt Date: 20201012
  Transmission Date: 20210114
  Serious: Yes (Life-Threatening, Hospitalization, Other)
  Sender: FDA-Public Use
  Company Number: CN-LUPIN PHARMACEUTICALS INC.-2020-06993

PATIENT
  Age: 66 Year
  Sex: Male

DRUGS (21)
  1. LINEZOLID. [Suspect]
     Active Substance: LINEZOLID
     Indication: ANTIBIOTIC THERAPY
  2. INTERFERON ALFA-1B [Concomitant]
     Active Substance: INTERFERON ALFA-1B
     Indication: COVID-19
     Dosage: 30 MICROGRAM, BID
     Route: 065
     Dates: start: 2020
  3. VORICONAZOLE. [Suspect]
     Active Substance: VORICONAZOLE
     Indication: SEPTIC SHOCK
     Dosage: UNK
     Route: 065
     Dates: start: 2020
  4. LINEZOLID. [Suspect]
     Active Substance: LINEZOLID
     Indication: SEPTIC SHOCK
     Dosage: UNK
     Route: 065
     Dates: start: 2020
  5. COLISTIN [Concomitant]
     Active Substance: COLISTIN
     Indication: SEPTIC SHOCK
     Dosage: UNK
     Route: 065
  6. VORICONAZOLE. [Suspect]
     Active Substance: VORICONAZOLE
     Indication: ANTIFUNGAL TREATMENT
  7. VANCOMYCIN [Suspect]
     Active Substance: VANCOMYCIN
     Indication: ANTIBIOTIC THERAPY
  8. MINOCYCLINE [Suspect]
     Active Substance: MINOCYCLINE HYDROCHLORIDE
     Indication: ANTIBIOTIC THERAPY
  9. MOXIFLOXACIN. [Suspect]
     Active Substance: MOXIFLOXACIN
     Indication: COVID-19
     Dosage: 400 MILLIGRAM, QD
     Route: 065
  10. MEROPENEM. [Concomitant]
     Active Substance: MEROPENEM
     Indication: ANTIBIOTIC THERAPY
  11. RIBAVIRIN. [Suspect]
     Active Substance: RIBAVIRIN
     Indication: COVID-19
     Dosage: 500 MILLIGRAM, BID
     Route: 065
     Dates: start: 2020
  12. VANCOMYCIN [Suspect]
     Active Substance: VANCOMYCIN
     Indication: SEPTIC SHOCK
     Dosage: UNK
     Route: 065
     Dates: start: 2020
  13. METHYLPREDNISOLONE. [Suspect]
     Active Substance: METHYLPREDNISOLONE
     Indication: COVID-19
     Dosage: UNK
     Route: 065
     Dates: start: 2020
  14. LOPINAVIR/RITONAVIR [Concomitant]
     Active Substance: LOPINAVIR\RITONAVIR
     Indication: COVID-19
     Dosage: UNK
     Route: 065
     Dates: start: 2020
  15. OSELTAMIVIR [Suspect]
     Active Substance: OSELTAMIVIR
     Indication: COVID-19
     Dosage: 75 MILLIGRAM, BID
     Route: 065
     Dates: start: 2020
  16. CEFOPERAZONE [Concomitant]
     Active Substance: CEFOPERAZONE
     Indication: ANTIBIOTIC THERAPY
  17. COLISTIN [Concomitant]
     Active Substance: COLISTIN
     Indication: ANTIBIOTIC THERAPY
  18. MINOCYCLINE [Suspect]
     Active Substance: MINOCYCLINE HYDROCHLORIDE
     Indication: SEPTIC SHOCK
     Dosage: UNK
     Route: 065
     Dates: start: 2020
  19. MEROPENEM. [Concomitant]
     Active Substance: MEROPENEM
     Indication: SEPTIC SHOCK
     Dosage: UNK
     Route: 065
     Dates: start: 2020
  20. CEFOPERAZONE [Concomitant]
     Active Substance: CEFOPERAZONE
     Indication: SEPTIC SHOCK
     Dosage: UNK
     Route: 065
     Dates: start: 2020
  21. GANCICLOVIR. [Concomitant]
     Active Substance: GANCICLOVIR
     Indication: COVID-19
     Dosage: UNK
     Route: 065
     Dates: start: 2020

REACTIONS (2)
  - Off label use [Unknown]
  - Drug ineffective [Unknown]

NARRATIVE: CASE EVENT DATE: 2020
